FAERS Safety Report 8136562 (Version 2)
Quarter: 2012Q4

REPORT INFORMATION
  Report Type: 
  Country: LB (occurrence: LB)
  Receive Date: 20110914
  Receipt Date: 20121112
  Transmission Date: 20130627
  Serious: Yes (Other)
  Sender: FDA-Public Use
  Company Number: LB-CELGENEUS-093-20785-11090570

PATIENT

DRUGS (1)
  1. THALIDOMIDE CELGENE [Suspect]
     Indication: DRUG USE FOR UNKNOWN INDICATION
     Route: 048

REACTIONS (1)
  - Transplant [Unknown]
